FAERS Safety Report 19305276 (Version 3)
Quarter: 2022Q1

REPORT INFORMATION
  Report Type: Spontaneous
  Country: JP (occurrence: JP)
  Receive Date: 20210526
  Receipt Date: 20220310
  Transmission Date: 20220423
  Serious: Yes (Hospitalization)
  Sender: FDA-Public Use
  Company Number: JP-MTPC-MTPC2021-0012731

PATIENT
  Age: 62 Year
  Sex: Male

DRUGS (4)
  1. REMICADE [Suspect]
     Active Substance: INFLIXIMAB
     Indication: Psoriatic arthropathy
     Dosage: 5 MILLIGRAM/KILOGRAM, QD
     Route: 042
     Dates: start: 20191121
  2. REMICADE [Suspect]
     Active Substance: INFLIXIMAB
     Dosage: 9.5 MILLIGRAM/KILOGRAM, QD
     Route: 042
     Dates: start: 20200219
  3. REMICADE [Suspect]
     Active Substance: INFLIXIMAB
     Dosage: 9.5 MILLIGRAM/KILOGRAM, QD
     Route: 042
     Dates: start: 20200805, end: 20200805
  4. AZULFIDINE EN-TABS [Concomitant]
     Active Substance: SULFASALAZINE
     Indication: Psoriatic arthropathy
     Dosage: 500 MILLIGRAM, BID
     Route: 048

REACTIONS (1)
  - Thyroiditis subacute [Recovered/Resolved with Sequelae]

NARRATIVE: CASE EVENT DATE: 20200916
